FAERS Safety Report 8041658-8 (Version None)
Quarter: 2012Q1

REPORT INFORMATION
  Report Type: 
  Country: None (occurrence: None)
  Receive Date: 20120112
  Receipt Date: 20120104
  Transmission Date: 20120608
  Serious: Yes (Other)
  Sender: FDA-Public Use
  Company Number: US-ELI_LILLY_AND_COMPANY-US201201001475

PATIENT
  Age: 52 Year
  Sex: Male

DRUGS (3)
  1. ALPRAZOLAM [Concomitant]
  2. CYMBALTA [Suspect]
     Indication: BIPOLAR DISORDER
     Dosage: 90 MG, QD
     Dates: start: 20060101
  3. ABILIFY [Concomitant]

REACTIONS (5)
  - VISUAL ACUITY REDUCED [None]
  - HEPATITIS C [None]
  - JAUNDICE [None]
  - OCULAR ICTERUS [None]
  - OFF LABEL USE [None]
